FAERS Safety Report 11769038 (Version 1)
Quarter: 2015Q4

REPORT INFORMATION
  Report Type: Spontaneous
  Country: US (occurrence: US)
  Receive Date: 20151123
  Receipt Date: 20151123
  Transmission Date: 20160304
  Serious: No
  Sender: FDA-Public Use
  Company Number: US-JNJFOC-20151110263

PATIENT
  Age: 52 Year
  Sex: Female
  Weight: 40.82 kg

DRUGS (2)
  1. CHILDRENS ZYRTEC [Suspect]
     Active Substance: CETIRIZINE HYDROCHLORIDE
     Indication: MULTIPLE ALLERGIES
     Dosage: SMALL DOSE, ONCE
     Route: 048
     Dates: start: 20151028
  2. CHILDRENS ZYRTEC [Suspect]
     Active Substance: CETIRIZINE HYDROCHLORIDE
     Indication: ORAL PRURITUS
     Dosage: SMALL DOSE, ONCE
     Route: 048
     Dates: start: 20151028

REACTIONS (3)
  - Fatigue [Recovered/Resolved]
  - Product use issue [Recovered/Resolved]
  - Somnolence [Recovered/Resolved]

NARRATIVE: CASE EVENT DATE: 20151028
